FAERS Safety Report 8431183-4 (Version None)
Quarter: 2012Q2

REPORT INFORMATION
  Report Type: 
  Country: None (occurrence: None)
  Receive Date: 20120612
  Receipt Date: 20120607
  Transmission Date: 20120825
  Serious: Yes (Hospitalization)
  Sender: FDA-Public Use
  Company Number: PHHY2012RS048807

PATIENT
  Age: 25 Year
  Sex: Female

DRUGS (2)
  1. AZITHROMYCIN [Suspect]
     Indication: BRONCHITIS
     Dosage: 1 DF DAILY
     Route: 048
     Dates: start: 20120603, end: 20120605
  2. BERODUAL [Concomitant]
     Indication: BRONCHITIS

REACTIONS (3)
  - CHOKING [None]
  - PALPITATIONS [None]
  - ATRIOVENTRICULAR BLOCK [None]
